FAERS Safety Report 10717637 (Version 1)
Quarter: 2015Q1

REPORT INFORMATION
  Report Type: Spontaneous
  Country: US (occurrence: US)
  Receive Date: 20150116
  Receipt Date: 20150116
  Transmission Date: 20150721
  Serious: Yes (Hospitalization, Other)
  Sender: FDA-Public Use
  Company Number: US-UNITED THERAPEUTICS-UNT-2015-000306

PATIENT
  Age: 47 Year
  Sex: Female
  Weight: 85.26 kg

DRUGS (1)
  1. TYVASO [Suspect]
     Active Substance: TREPROSTINIL
     Indication: PULMONARY HYPERTENSION
     Dosage: 18-54 ?G QID
     Dates: start: 20140822

REACTIONS (5)
  - Bronchitis [Unknown]
  - Abdominal pain [Unknown]
  - Dialysis [Unknown]
  - Throat irritation [Unknown]
  - Shunt infection [Unknown]

NARRATIVE: CASE EVENT DATE: 201412
